FAERS Safety Report 7593949-2 (Version None)
Quarter: 2011Q3

REPORT INFORMATION
  Report Type: 
  Country: None (occurrence: None)
  Receive Date: 20110706
  Receipt Date: 20110627
  Transmission Date: 20111222
  Serious: Yes (Other)
  Sender: FDA-Public Use
  Company Number: US-CEPHALON-2011002191

PATIENT
  Sex: Female
  Weight: 91 kg

DRUGS (11)
  1. NUVIGIL [Suspect]
     Indication: SOMNOLENCE
     Route: 048
     Dates: start: 20110201, end: 20110306
  2. AMBIEN [Concomitant]
     Dates: end: 20110101
  3. XALATAN [Concomitant]
  4. MULTI-VITAMIN [Concomitant]
  5. AMBIEN [Concomitant]
     Dates: start: 20110307
  6. DIGOXIN [Concomitant]
  7. RESTASIS [Concomitant]
  8. NUVIGIL [Suspect]
     Indication: SLEEP APNOEA SYNDROME
     Route: 048
     Dates: start: 20110307, end: 20110101
  9. EVOXAC [Concomitant]
  10. CYMBALTA [Concomitant]
  11. CALCIUM SUPPLEMENT [Concomitant]

REACTIONS (2)
  - HANGOVER [None]
  - HALLUCINATION [None]
